FAERS Safety Report 5619077-0 (Version None)
Quarter: 2008Q2

REPORT INFORMATION
  Report Type: 
  Country: None (occurrence: None)
  Receive Date: 20080114
  Receipt Date: 20071018
  Transmission Date: 20081010
  Serious: Yes (Other)
  Sender: FDA-Public Use
  Company Number: 2007074233

PATIENT
  Sex: Female
  Weight: 73 kg

DRUGS (6)
  1. DEPO-SUBQ PROVERA 104 [Suspect]
     Indication: CONTRACEPTION
     Dosage: 104 MG (104 MG,1ST INJECTION/13 WEEKS), SUBCUTANEOUS
     Route: 058
     Dates: start: 20050809, end: 20050809
  2. DEPO-SUBQ PROVERA 104 [Suspect]
     Dosage: 104 MG (104 MG,MOST RECENT INJECTION/13 WEEKS),SUBCUTANEOUS
     Route: 058
     Dates: start: 20070501, end: 20070501
  3. DEPO-SUBQ PROVERA 104 [Suspect]
  4. MACROBID [Concomitant]
  5. DIFLUCAN [Concomitant]
  6. AMOXICILLIN [Concomitant]

REACTIONS (1)
  - INJECTION SITE REACTION [None]
